FAERS Safety Report 7795533-4 (Version None)
Quarter: 2011Q3

REPORT INFORMATION
  Report Type: 
  Country: None (occurrence: None)
  Receive Date: 20110930
  Receipt Date: 20110915
  Transmission Date: 20111222
  Serious: Yes (Hospitalization)
  Sender: FDA-Public Use
  Company Number: ACO-26819_2011

PATIENT
  Sex: Female

DRUGS (3)
  1. FAMPYRA (DALFAMPRIDINE) TABLET, 10MG [Suspect]
     Indication: GAIT DISTURBANCE
     Dosage: ORAL ; ORAL
     Route: 048
     Dates: start: 20100101, end: 20100101
  2. FAMPYRA (DALFAMPRIDINE) TABLET, 10MG [Suspect]
     Indication: GAIT DISTURBANCE
     Dosage: ORAL ; ORAL
     Route: 048
     Dates: start: 20110815, end: 20110914
  3. GILENYA [Suspect]
     Indication: MULTIPLE SCLEROSIS
     Dates: start: 20110401, end: 20110901

REACTIONS (2)
  - PALPITATIONS [None]
  - DRUG INTERACTION [None]
